FAERS Safety Report 6443233-5 (Version None)
Quarter: 2009Q4

REPORT INFORMATION
  Report Type: 
  Country: None (occurrence: None)
  Receive Date: 20091113
  Receipt Date: 20091029
  Transmission Date: 20100525
  Serious: Yes (Hospitalization)
  Sender: FDA-Public Use
  Company Number: SPV1-2009-02178

PATIENT
  Age: 26 Year
  Sex: Male
  Weight: 87 kg

DRUGS (8)
  1. CARBAMAZEPINE [Suspect]
     Indication: AGGRESSION
     Dosage: 200 MG, 3X/DAY:TID,
  2. CARBAMAZEPINE [Suspect]
     Indication: BIPOLAR DISORDER
     Dosage: 200 MG, 3X/DAY:TID,
  3. CARBAMAZEPINE [Suspect]
     Indication: CONVULSION
     Dosage: 200 MG, 3X/DAY:TID,
  4. TOPIRAMATE [Concomitant]
  5. OLANZAPINE [Concomitant]
  6. QUETIAPINE FUMARATE [Concomitant]
  7. GUANFACINE HYDROCHLORIDE [Concomitant]
  8. DESMOPRESSIN ACETATE (DESMOPRESSIN ACETATE) [Concomitant]

REACTIONS (6)
  - AGGRESSION [None]
  - AGITATION [None]
  - BLUNTED AFFECT [None]
  - ENCEPHALOPATHY [None]
  - HYPERAMMONAEMIA [None]
  - JUDGEMENT IMPAIRED [None]
